FAERS Safety Report 14599762 (Version 2)
Quarter: 2018Q2

REPORT INFORMATION
  Report Type: Spontaneous
  Country: FR (occurrence: FR)
  Receive Date: 20180305
  Receipt Date: 20180423
  Transmission Date: 20180711
  Serious: Yes (Life-Threatening)
  Sender: FDA-Public Use
  Company Number: FR-PFIZER INC-2018088888

PATIENT
  Age: 45 Year
  Sex: Female

DRUGS (7)
  1. CEFOXITIN SODIUM [Suspect]
     Active Substance: CEFOXITIN SODIUM
     Indication: ANTIBIOTIC THERAPY
     Dosage: 2 G, DAILY
     Route: 042
     Dates: start: 20180205, end: 20180205
  2. LIDOCAINE. [Suspect]
     Active Substance: LIDOCAINE
     Indication: GENERAL ANAESTHESIA
     Dosage: 3.5 MG/KG, EVERY HOUR
     Route: 042
     Dates: start: 20180205, end: 20180205
  3. KETAMINE [Suspect]
     Active Substance: KETAMINE
     Indication: GENERAL ANAESTHESIA
     Dosage: 25 MG, DAILY
     Route: 042
     Dates: start: 20180205, end: 20180205
  4. DEXDOR [Suspect]
     Active Substance: DEXMEDETOMIDINE HYDROCHLORIDE
     Indication: GENERAL ANAESTHESIA
     Dosage: UNK
     Route: 041
     Dates: start: 20180205, end: 20180205
  5. PROPOFOL. [Suspect]
     Active Substance: PROPOFOL
     Dosage: 200 MG, DAILY
     Route: 042
     Dates: start: 20180205
  6. REMIFENTANIL [Suspect]
     Active Substance: REMIFENTANIL
     Dosage: UNK
     Route: 042
     Dates: start: 20180205
  7. NIMBEX [Suspect]
     Active Substance: CISATRACURIUM BESYLATE
     Indication: GENERAL ANAESTHESIA
     Dosage: 10 MG, DAILY
     Route: 041
     Dates: start: 20080205, end: 20180205

REACTIONS (3)
  - Anaphylactoid reaction [Recovered/Resolved]
  - Rash [Recovered/Resolved]
  - Cardio-respiratory arrest [Recovered/Resolved]

NARRATIVE: CASE EVENT DATE: 20180205
